FAERS Safety Report 11198472 (Version 2)
Quarter: 2015Q2

REPORT INFORMATION
  Report Type: Spontaneous
  Country: US (occurrence: None)
  Receive Date: 20150616
  Receipt Date: 20150624
  Transmission Date: 20150821
  Serious: No
  Sender: FDA-Public Use
  Company Number: SOM-3618-AE

PATIENT
  Age: 86 Year
  Sex: Male
  Weight: 81.65 kg

DRUGS (2)
  1. HERBS AND VITAMINS [Concomitant]
     Active Substance: HERBS\VITAMINS
  2. SF [Suspect]
     Active Substance: SODIUM FLUORIDE
     Indication: TOOTH DISORDER
     Dosage: TOPICAL ON TEETH
     Route: 061
     Dates: start: 201504, end: 20150610

REACTIONS (7)
  - Rash pruritic [None]
  - Dermatitis [None]
  - Rash [None]
  - Rash generalised [None]
  - Rash erythematous [None]
  - Hypersensitivity [None]
  - Secretion discharge [None]

NARRATIVE: CASE EVENT DATE: 20150610
